FAERS Safety Report 7267917-4 (Version None)
Quarter: 2011Q1

REPORT INFORMATION
  Report Type: 
  Country: None (occurrence: None)
  Receive Date: 20110201
  Receipt Date: 20110127
  Transmission Date: 20110831
  Serious: Yes (Other)
  Sender: FDA-Public Use
  Company Number: GR-BRISTOL-MYERS SQUIBB COMPANY-15507155

PATIENT
  Age: 1 Decade
  Sex: Female

DRUGS (3)
  1. TEMOZOLOMIDE [Suspect]
     Indication: BRAIN NEOPLASM
     Dosage: 5 DAYS EVERY 21 DAYS FOR 9 MTHS ALSO TAKEN AS 100-180MG/M2 FOR 5 DAYS EVERY 21 DAYS FOR 28 MTHS
     Dates: end: 20081201
  2. ETOPOSIDE [Suspect]
     Indication: BRAIN NEOPLASM
     Dosage: 100MG/M SUP(2)
  3. LOMUSTINE [Suspect]
     Indication: BRAIN NEOPLASM
     Dosage: 80MG/M SUP (2) (CCNU:80MG/M2)

REACTIONS (1)
  - ACUTE MYELOID LEUKAEMIA [None]
